FAERS Safety Report 9063257 (Version 1)
Quarter: 2013Q1

REPORT INFORMATION
  Report Type: Report from Study
  Country: US (occurrence: US)
  Receive Date: 20130129
  Receipt Date: 20130129
  Transmission Date: 20140127
  Serious: No
  Sender: FDA-Public Use
  Company Number: US-ABBOTT-12P-163-0951891-00

PATIENT
  Age: 29 Year
  Sex: Female

DRUGS (12)
  1. HUMIRA 40 MG/ 0.8 ML PRE-FILLED SYRINGE [Suspect]
     Indication: RHEUMATOID ARTHRITIS
     Dates: start: 201112
  2. HUMIRA 40 MG/ 0.8 ML PRE-FILLED SYRINGE [Suspect]
     Dates: start: 201203
  3. HUMIRA 40 MG/0.8 ML PEN [Suspect]
     Indication: RHEUMATOID ARTHRITIS
     Dates: end: 201201
  4. HUMIRA 40 MG/0.8 ML PEN [Suspect]
     Dates: start: 201203
  5. OMEPRAZOLE [Concomitant]
     Indication: GASTROOESOPHAGEAL REFLUX DISEASE
  6. VIT C [Concomitant]
     Indication: PRODUCT USED FOR UNKNOWN INDICATION
     Dosage: PRESCRIPTION IS FOR TWICE A DAY, BUT FORGETS TO TAKE IN EVENING.
  7. FOLIC ACID [Concomitant]
     Indication: PRODUCT USED FOR UNKNOWN INDICATION
  8. SINGULAIR [Concomitant]
     Indication: ASTHMA
  9. VENTOLIN [Concomitant]
     Indication: ASTHMA
  10. ALEVE [Concomitant]
     Indication: PAIN
  11. METHOTREXATE [Concomitant]
     Dosage: 10 CAPS/WEEK
     Dates: start: 20120525
  12. METHOTREXATE [Concomitant]
     Dosage: 8 CAPS/ WEEK
     Dates: end: 20120525

REACTIONS (7)
  - Musculoskeletal stiffness [Not Recovered/Not Resolved]
  - Pain [Not Recovered/Not Resolved]
  - Rheumatoid arthritis [Not Recovered/Not Resolved]
  - Device malfunction [Unknown]
  - Device malfunction [Unknown]
  - Incorrect dose administered [Unknown]
  - Incorrect dose administered [Unknown]
